FAERS Safety Report 7929140-7 (Version None)
Quarter: 2011Q4

REPORT INFORMATION
  Report Type: 
  Country: None (occurrence: None)
  Receive Date: 20111119
  Receipt Date: 20111107
  Transmission Date: 20120403
  Serious: Yes (Hospitalization, Other)
  Sender: FDA-Public Use
  Company Number: US-ELI_LILLY_AND_COMPANY-US201111002803

PATIENT
  Sex: Female

DRUGS (6)
  1. FORTEO [Suspect]
     Indication: OSTEOPOROSIS
     Dosage: 20 UG, QD
     Dates: start: 20110916, end: 20110930
  2. ADVAIR DISKUS 100/50 [Concomitant]
  3. VENTOLIN                                /SCH/ [Concomitant]
  4. PRILOSEC [Concomitant]
  5. CARAFATE [Concomitant]
  6. SINGULAIR [Concomitant]

REACTIONS (4)
  - HYPERSENSITIVITY [None]
  - HEADACHE [None]
  - MYOCARDIAL INFARCTION [None]
  - STRESS [None]
